FAERS Safety Report 14682764 (Version 2)
Quarter: 2018Q2

REPORT INFORMATION
  Report Type: Spontaneous
  Country: US (occurrence: US)
  Receive Date: 20180327
  Receipt Date: 20180613
  Transmission Date: 20180711
  Serious: Yes (Other)
  Sender: FDA-Public Use
  Company Number: US-009507513-1803USA010404

PATIENT
  Age: 73 Year
  Sex: Male

DRUGS (2)
  1. KEYTRUDA [Suspect]
     Active Substance: PEMBROLIZUMAB
     Indication: LUNG SQUAMOUS CELL CARCINOMA METASTATIC
  2. IPILIMUMAB [Concomitant]
     Active Substance: IPILIMUMAB
     Indication: LUNG SQUAMOUS CELL CARCINOMA METASTATIC

REACTIONS (2)
  - Myocarditis [Unknown]
  - Product use in unapproved indication [Unknown]
